FAERS Safety Report 7606189-5 (Version None)
Quarter: 2011Q3

REPORT INFORMATION
  Report Type: 
  Country: None (occurrence: None)
  Receive Date: 20110713
  Receipt Date: 20110710
  Transmission Date: 20111222
  Serious: Yes (Other)
  Sender: FDA-Public Use
  Company Number: PR-BAYER-2011-058250

PATIENT

DRUGS (2)
  1. AVELOX [Suspect]
     Dosage: UNK
     Dates: end: 20110708
  2. ADVAIR DISKUS 100/50 [Concomitant]

REACTIONS (5)
  - HYPERTENSION [None]
  - BUNDLE BRANCH BLOCK LEFT [None]
  - ASTHENIA [None]
  - MUSCULOSKELETAL PAIN [None]
  - DRY MOUTH [None]
